FAERS Safety Report 5800569-6 (Version None)
Quarter: 2008Q3

REPORT INFORMATION
  Report Type: 
  Country: None (occurrence: None)
  Receive Date: 20080703
  Receipt Date: 20080627
  Transmission Date: 20090109
  Serious: Yes (Hospitalization)
  Sender: FDA-Public Use
  Company Number: FR-ROCHE-569179

PATIENT
  Sex: Female

DRUGS (14)
  1. ROCALTROL [Suspect]
     Route: 048
     Dates: start: 20070316
  2. ROCALTROL [Suspect]
     Route: 048
     Dates: start: 20080101, end: 20080509
  3. CACIT D3 [Interacting]
     Indication: DRUG USE FOR UNKNOWN INDICATION
     Route: 048
     Dates: start: 20080107, end: 20080509
  4. COVERSYL [Concomitant]
     Dosage: TAKEN IN CHRONIC MANNER.
     Dates: end: 20080509
  5. IPERTEN [Concomitant]
     Dosage: TAKEN IN CHRONIC MANNER
     Dates: end: 20080509
  6. TAMOXIFEN CITRATE [Concomitant]
     Dosage: TAKEN IN CHRONIC MANNER
     Dates: end: 20080509
  7. TORENTAL [Concomitant]
  8. ASPIRIN [Concomitant]
     Dosage: TAKEN IN CHRONIC MANNER.
  9. PRAVASTATIN [Concomitant]
     Dosage: TAKEN IN CHRONIC MANNER.
  10. EZETROL [Concomitant]
     Dosage: TAKEN IN CHRONIC MANNER.
  11. BISOPROLOL FUMARATE [Concomitant]
     Dosage: TAKEN IN CHRONIC MANNER.
  12. ALLOPURINOL [Concomitant]
     Dosage: TAKEN IN CHRONIC MANNER.
  13. DESLORATADINE [Concomitant]
     Dosage: TAKEN IN CHRONIC MANNER.
  14. NEXIUM [Concomitant]
     Dosage: TAKEN IN CHRONIC MANNER.

REACTIONS (4)
  - ASTHENIA [None]
  - DRUG INTERACTION [None]
  - HYPERCALCAEMIA [None]
  - RENAL FAILURE ACUTE [None]
